FAERS Safety Report 8608527-3 (Version None)
Quarter: 2012Q3

REPORT INFORMATION
  Report Type: 
  Country: None (occurrence: None)
  Receive Date: 20120806
  Receipt Date: 20120725
  Transmission Date: 20120928
  Serious: Yes (Hospitalization)
  Sender: FDA-Public Use
  Company Number: ACO_30198_2012

PATIENT
  Age: 56 Year
  Sex: Male

DRUGS (13)
  1. MANDELAMINE (METHENAMINE MANDELATE) [Concomitant]
  2. DOCUSATE SODIUM (DOCUSATE SODIUM) [Concomitant]
  3. VIT C (ASCORBIC ACID) [Concomitant]
  4. AMPYRA [Suspect]
     Indication: MULTIPLE SCLEROSIS
     Dosage: BID, ORAL
     Route: 048
     Dates: start: 20060324
  5. FLOMAX [Concomitant]
  6. OXYBUTYNIN [Concomitant]
  7. VIT D (ERGOCALCIFEROL) [Concomitant]
  8. WELLBUTRIN [Concomitant]
  9. NEOCITRAN /00430301/ (ACETANILIDE, ASCORBIC ACID, PHENIRAMINE MALEATE, [Concomitant]
  10. BACLOFEN [Concomitant]
  11. QUINAPRIL HCL (QUINAPRIL HYDROCHLORIDE) [Concomitant]
  12. ACETAMINOPHEN [Concomitant]
  13. NAPROXEN (ALEVE) [Concomitant]

REACTIONS (8)
  - URINARY TRACT INFECTION [None]
  - UHTHOFF'S PHENOMENON [None]
  - RED BLOOD CELL COUNT DECREASED [None]
  - HAEMOGLOBIN DECREASED [None]
  - HAEMATOCRIT DECREASED [None]
  - FALL [None]
  - WHITE BLOOD CELL COUNT INCREASED [None]
  - ESCHERICHIA TEST POSITIVE [None]
